FAERS Safety Report 4879663-2 (Version None)
Quarter: 2006Q1

REPORT INFORMATION
  Report Type: 
  Country: None (occurrence: None)
  Receive Date: 20060111
  Receipt Date: 20051229
  Transmission Date: 20060701
  Serious: Yes (Hospitalization)
  Sender: FDA-Public Use
  Company Number: 2005US-01419

PATIENT
  Sex: Male

DRUGS (1)
  1. CEFUROXIME (AXETIL) (CEFUROXIME AXETIL) TABLET, 500MG [Suspect]
     Indication: PNEUMONIA
     Dosage: 500 MG, ORAL
     Route: 048
     Dates: start: 20051201, end: 20051210

REACTIONS (10)
  - CHEST DISCOMFORT [None]
  - DIARRHOEA [None]
  - DIFFICULTY IN WALKING [None]
  - DYSPNOEA EXERTIONAL [None]
  - ERYTHEMA MULTIFORME [None]
  - HEADACHE [None]
  - MITRAL VALVE DISEASE [None]
  - NAUSEA [None]
  - OESOPHAGEAL PAIN [None]
  - VOMITING [None]
